FAERS Safety Report 5314201-1 (Version None)
Quarter: 2007Q2

REPORT INFORMATION
  Report Type: 
  Country: None (occurrence: None)
  Receive Date: 20070425
  Receipt Date: 20070409
  Transmission Date: 20071010
  Serious: Yes (Hospitalization, Disabling, Other)
  Sender: FDA-Public Use
  Company Number: 2007JP000725

PATIENT
  Age: 69 Year
  Sex: Male
  Weight: 47.5 kg

DRUGS (12)
  1. TACROLIMUS [Suspect]
     Indication: RHEUMATOID ARTHRITIS
     Dosage: SEE IMAGE
     Route: 048
     Dates: start: 20060607, end: 20060718
  2. TACROLIMUS [Suspect]
     Indication: RHEUMATOID ARTHRITIS
     Dosage: SEE IMAGE
     Route: 048
     Dates: start: 20060719, end: 20061108
  3. PREDNISOLONE [Suspect]
     Indication: RHEUMATOID ARTHRITIS
     Dosage: SEE IMAGE
     Route: 048
     Dates: start: 20060607, end: 20061025
  4. PREDNISOLONE [Suspect]
     Indication: RHEUMATOID ARTHRITIS
     Dosage: SEE IMAGE
     Route: 048
     Dates: start: 20061026
  5. TAMSULOSIN HCL [Concomitant]
  6. LIPITOR [Concomitant]
  7. MOBIC [Concomitant]
  8. ASPIRIN [Concomitant]
  9. DIOVAN [Concomitant]
  10. GLIMICRON (GLICLAZIDE) [Concomitant]
  11. EPADEL (ETHYL ICOSAPENTATE) [Concomitant]
  12. EVIPROSTAT (CHIMAPHILA UMBELLATA, MANAGANESE CHLORIDE, EQUISETUM ARVEN [Concomitant]

REACTIONS (6)
  - BETA 2 MICROGLOBULIN INCREASED [None]
  - BLOOD UREA INCREASED [None]
  - CONDITION AGGRAVATED [None]
  - DIABETES MELLITUS [None]
  - EXTREMITY NECROSIS [None]
  - SKIN ULCER [None]
